FAERS Safety Report 24636502 (Version 1)
Quarter: 2024Q4

REPORT INFORMATION
  Report Type: Spontaneous
  Country: US (occurrence: US)
  Receive Date: 20241119
  Receipt Date: 20241119
  Transmission Date: 20250115
  Serious: Yes (Life-Threatening, Hospitalization)
  Sender: MYLAN
  Company Number: US-MYLANLABS-2024M1102354

PATIENT
  Age: 52 Year
  Sex: Female

DRUGS (4)
  1. FENTANYL [Suspect]
     Active Substance: FENTANYL
     Indication: Sedative therapy
     Dosage: 50 MICROGRAM
     Route: 065
  2. FENTANYL [Suspect]
     Active Substance: FENTANYL
     Indication: Sedative therapy
     Dosage: 50 MICROGRAM,SECOND BOLUS
     Route: 065
  3. MIDAZOLAM [Concomitant]
     Active Substance: MIDAZOLAM
     Indication: Sedative therapy
     Dosage: 2 MILLIGRAM
     Route: 065
  4. LIDOCAINE [Concomitant]
     Active Substance: LIDOCAINE
     Indication: Local anaesthesia
     Dosage: UNK
     Route: 065

REACTIONS (1)
  - Chest wall rigidity [Recovering/Resolving]
